FAERS Safety Report 8400755-5 (Version None)
Quarter: 2012Q2

REPORT INFORMATION
  Report Type: 
  Country: None (occurrence: None)
  Receive Date: 20120531
  Receipt Date: 20120521
  Transmission Date: 20120825
  Serious: Yes (Other)
  Sender: FDA-Public Use
  Company Number: JP-MERCK-1205USA04838

PATIENT
  Age: 58 Year
  Sex: Male

DRUGS (3)
  1. ASPIRIN [Suspect]
     Dosage: DAILY DOSAGE UNKNOWN
     Route: 048
  2. JANUVIA [Suspect]
     Route: 048
     Dates: start: 20111201, end: 20120516
  3. SHAKUYAKU-KANZO-TO [Concomitant]
     Dosage: DAILY DOSAGE UNKNOWN
     Route: 048

REACTIONS (1)
  - RHABDOMYOLYSIS [None]
